FAERS Safety Report 19866366 (Version 1)
Quarter: 2021Q3

REPORT INFORMATION
  Report Type: Spontaneous
  Country: US (occurrence: US)
  Receive Date: 20210922
  Receipt Date: 20210922
  Transmission Date: 20211014
  Serious: No
  Sender: FDA-Public Use
  Company Number: None

PATIENT
  Age: 62 Year
  Sex: Female
  Weight: 61.2 kg

DRUGS (4)
  1. ESTRADIOL 1 MG TABLET GENERIC FOR ESTRACE BY TEVA RX#2444?0102?1645 [Suspect]
     Active Substance: ESTRADIOL
     Indication: MENOPAUSAL SYMPTOMS
     Dosage: ?          QUANTITY:100 TABLET(S);OTHER FREQUENCY:3 WEEKS PER MONTH;?
     Route: 048
  2. FLINTSTONE VITAMIN [Concomitant]
  3. OCCASIONAL AMBIEN FOR SLEEP [Concomitant]
  4. PROGESTERONE. [Concomitant]
     Active Substance: PROGESTERONE

REACTIONS (3)
  - Insomnia [None]
  - Headache [None]
  - Hot flush [None]

NARRATIVE: CASE EVENT DATE: 20210921
